FAERS Safety Report 20303102 (Version 4)
Quarter: 2022Q2

REPORT INFORMATION
  Report Type: Spontaneous
  Country: US (occurrence: US)
  Receive Date: 20220106
  Receipt Date: 20220428
  Transmission Date: 20220721
  Serious: No
  Sender: FDA-Public Use
  Company Number: US-KARYOPHARM-2021KPT001649

PATIENT

DRUGS (19)
  1. XPOVIO [Suspect]
     Active Substance: SELINEXOR
     Indication: Plasma cell myeloma
     Dosage: 80 MG, WEEKLY
     Route: 048
     Dates: start: 20211220, end: 20220124
  2. XPOVIO [Suspect]
     Active Substance: SELINEXOR
     Dosage: 80 MG, WEEKLY
     Route: 048
     Dates: start: 20220125, end: 20220308
  3. XPOVIO [Suspect]
     Active Substance: SELINEXOR
     Dosage: 80 MG, WEEKLY
     Route: 048
     Dates: start: 20220308, end: 202203
  4. XPOVIO [Suspect]
     Active Substance: SELINEXOR
     Dosage: 60 MG, WEEKLY
     Route: 048
     Dates: start: 202203, end: 20220415
  5. ACYCLOVIR [Concomitant]
     Active Substance: ACYCLOVIR
  6. ALBUTEROL SULFATE [Concomitant]
     Active Substance: ALBUTEROL SULFATE
  7. AMLODIPINE [Concomitant]
     Active Substance: AMLODIPINE BESYLATE
  8. DARZALEX [Concomitant]
     Active Substance: DARATUMUMAB
  9. HYDROCHLOROTHIAZIDE [Concomitant]
     Active Substance: HYDROCHLOROTHIAZIDE
  10. LETROZOLE [Concomitant]
     Active Substance: LETROZOLE
  11. LORAZEPAM [Concomitant]
     Active Substance: LORAZEPAM
  12. METOPROLOL TARTRATE [Concomitant]
     Active Substance: METOPROLOL TARTRATE
  13. SINGULAIR [Concomitant]
     Active Substance: MONTELUKAST SODIUM
  14. EMLA [Concomitant]
     Active Substance: LIDOCAINE\PRILOCAINE
  15. DYAZIDE [Concomitant]
     Active Substance: HYDROCHLOROTHIAZIDE\TRIAMTERENE
  16. ZOFRAN [Concomitant]
     Active Substance: ONDANSETRON HYDROCHLORIDE
  17. POTASSIUM CHLORIDE [Concomitant]
     Active Substance: POTASSIUM CHLORIDE
  18. COMPAZINE [Concomitant]
     Active Substance: PROCHLORPERAZINE MALEATE
  19. TRIAMCINOLONE [Concomitant]
     Active Substance: TRIAMCINOLONE

REACTIONS (12)
  - Vital functions abnormal [Unknown]
  - Blood test abnormal [Unknown]
  - Vitamin D decreased [Unknown]
  - Alopecia [Unknown]
  - Plasma cell myeloma [Unknown]
  - Nausea [Not Recovered/Not Resolved]
  - Vomiting [Recovering/Resolving]
  - Diarrhoea [Not Recovered/Not Resolved]
  - Decreased appetite [Unknown]
  - Haemoglobin decreased [Unknown]
  - Fatigue [Unknown]
  - Product dose omission issue [Unknown]

NARRATIVE: CASE EVENT DATE: 20211201
